FAERS Safety Report 7437474-8 (Version None)
Quarter: 2011Q2

REPORT INFORMATION
  Report Type: 
  Country: None (occurrence: None)
  Receive Date: 20110426
  Receipt Date: 20110407
  Transmission Date: 20111010
  Serious: Yes (Other)
  Sender: FDA-Public Use
  Company Number: PHHY2011AT28592

PATIENT
  Age: 21 Year
  Sex: Male

DRUGS (2)
  1. CIPROFLOXACIN [Suspect]
     Indication: PNEUMOCOCCAL IMMUNISATION
     Dosage: 250 MG, BID
     Route: 048
     Dates: start: 20110201
  2. HYLAK [Concomitant]
     Indication: ENTERITIS
     Dosage: 20 DF, TID

REACTIONS (4)
  - CONFUSIONAL STATE [None]
  - HEADACHE [None]
  - DISTURBANCE IN ATTENTION [None]
  - SCINTILLATING SCOTOMA [None]
